FAERS Safety Report 13333686 (Version 2)
Quarter: 2017Q2

REPORT INFORMATION
  Report Type: Report from Study
  Country: US (occurrence: US)
  Receive Date: 20170314
  Receipt Date: 20170404
  Transmission Date: 20170830
  Serious: Yes (Other)
  Sender: FDA-Public Use
  Company Number: US-009507513-1703USA002239

PATIENT
  Age: 57 Year
  Sex: Female

DRUGS (7)
  1. CORTICOSTEROIDS (UNSPECIFIED) [Concomitant]
     Active Substance: UNSPECIFIED INGREDIENT
     Dosage: 4.5 MG, UNK
     Dates: start: 20170222
  2. GASTROINTESTINAL PREPARATIONS (UNSPECIFIED) [Concomitant]
     Active Substance: UNSPECIFIED INGREDIENT
     Dosage: UNK
  3. CORTICOSTEROIDS (UNSPECIFIED) [Concomitant]
     Active Substance: UNSPECIFIED INGREDIENT
     Dosage: 5 MG, UNK
  4. OXYCODONE [Concomitant]
     Active Substance: OXYCODONE
     Dosage: UNK
  5. PANTOPRAZOLE [Concomitant]
     Active Substance: PANTOPRAZOLE
     Dosage: UNK
  6. CORTICOSTEROIDS (UNSPECIFIED) [Concomitant]
     Active Substance: UNSPECIFIED INGREDIENT
     Dosage: 3 MG, UNK
     Dates: start: 201702
  7. PEMBROLIZUMAB. [Suspect]
     Active Substance: PEMBROLIZUMAB
     Indication: GASTROINTESTINAL MELANOMA
     Dosage: UNK, EVERY 3 WEEKS
     Route: 042
     Dates: start: 20170208

REACTIONS (3)
  - Malignant neoplasm progression [Unknown]
  - Liver function test increased [Unknown]
  - Fatigue [Unknown]

NARRATIVE: CASE EVENT DATE: 2017
